FAERS Safety Report 9233351 (Version 1)
Quarter: 2013Q2

REPORT INFORMATION
  Report Type: Spontaneous
  Country: US (occurrence: US)
  Receive Date: 20130416
  Receipt Date: 20130416
  Transmission Date: 20140414
  Serious: No
  Sender: FDA-Public Use
  Company Number: US-BAYER-2013-041085

PATIENT
  Age: 53 Year
  Sex: Male

DRUGS (1)
  1. CIPRO [Suspect]
     Indication: SINUSITIS
     Dosage: 500 MG, BID FOR 7 DAYS

REACTIONS (12)
  - Musculoskeletal pain [Not Recovered/Not Resolved]
  - Rash [Not Recovered/Not Resolved]
  - Ear disorder [Not Recovered/Not Resolved]
  - Tinnitus [Not Recovered/Not Resolved]
  - Influenza like illness [Not Recovered/Not Resolved]
  - Oropharyngeal pain [Not Recovered/Not Resolved]
  - Dizziness [Not Recovered/Not Resolved]
  - Joint crepitation [None]
  - Pain in extremity [None]
  - Balance disorder [None]
  - Fatigue [None]
  - Feeling of despair [None]
